FAERS Safety Report 8012865-5 (Version None)
Quarter: 2011Q4

REPORT INFORMATION
  Report Type: 
  Country: None (occurrence: None)
  Receive Date: 20111229
  Receipt Date: 20111227
  Transmission Date: 20120403
  Serious: Yes (Other)
  Sender: FDA-Public Use
  Company Number: US-BRISTOL-MYERS SQUIBB COMPANY-16317943

PATIENT
  Age: 48 Year
  Sex: Female
  Weight: 84 kg

DRUGS (17)
  1. HYDROCODONE [Concomitant]
  2. PLAQUENIL [Concomitant]
  3. METHOTREXATE [Concomitant]
  4. TRAZODONE HCL [Concomitant]
  5. FENTANYL [Concomitant]
  6. IBUPROFEN [Concomitant]
  7. CELEXA [Concomitant]
  8. LAMICTAL [Concomitant]
  9. PREDNISONE TAB [Concomitant]
  10. IMITREX [Concomitant]
  11. AMBIEN [Concomitant]
  12. SIMVASTATIN [Concomitant]
  13. ORENCIA [Suspect]
     Indication: RHEUMATOID ARTHRITIS
     Dosage: LAST INFUSION OF ORENCIA 14DEC2011
     Route: 042
     Dates: start: 20110101
  14. MIRALAX [Concomitant]
  15. VESICARE [Concomitant]
  16. ALBUTEROL [Concomitant]
  17. NEXIUM [Concomitant]

REACTIONS (6)
  - RHEUMATOID ARTHRITIS [None]
  - CHOKING SENSATION [None]
  - DRY MOUTH [None]
  - PAIN [None]
  - DECREASED APPETITE [None]
  - MIGRAINE [None]
